FAERS Safety Report 9521705 (Version 1)
Quarter: 2013Q3

REPORT INFORMATION
  Report Type: Spontaneous
  Country: MX (occurrence: MX)
  Receive Date: 20130913
  Receipt Date: 20130913
  Transmission Date: 20140515
  Serious: Yes (Other)
  Sender: FDA-Public Use
  Company Number: PHHY2013MX100769

PATIENT
  Age: 84 Year
  Sex: Female

DRUGS (3)
  1. EXELON PATCH [Suspect]
     Dosage: UNK UKN, UNK
     Route: 062
  2. AKATINOL [Concomitant]
     Dosage: 1 UKN, DAILY
     Dates: start: 201303
  3. EBIXA [Concomitant]
     Dosage: 1 UKN, DAILY
     Dates: start: 201303

REACTIONS (7)
  - Aortic aneurysm [Unknown]
  - Cerebrovascular accident [Unknown]
  - Agnosia [Unknown]
  - Stress [Unknown]
  - Blood pressure decreased [Unknown]
  - Anxiety [Unknown]
  - Drug ineffective [Not Recovered/Not Resolved]
